FAERS Safety Report 4702389-2 (Version None)
Quarter: 2005Q2

REPORT INFORMATION
  Report Type: 
  Country: None (occurrence: None)
  Receive Date: 20050113
  Receipt Date: 20050113
  Transmission Date: 20051028
  Serious: No
  Sender: FDA-Public Use
  Company Number: None

PATIENT
  Sex: Male

DRUGS (3)
  1. RITALIN [Suspect]
     Indication: ATTENTION DEFICIT/HYPERACTIVITY DISORDER
     Dosage: 20 MG SR TWO TAB DAILY
  2. RITALIN [Suspect]
     Indication: FOETAL ALCOHOL SYNDROME
     Dosage: 20 MG SR TWO TAB DAILY
  3. RITALIN [Suspect]
     Indication: TOURETTE'S DISORDER
     Dosage: 20 MG SR TWO TAB DAILY

REACTIONS (4)
  - ABNORMAL BEHAVIOUR [None]
  - AGGRESSION [None]
  - DRUG INEFFECTIVE [None]
  - IMPULSIVE BEHAVIOUR [None]
